FAERS Safety Report 6816456-0 (Version None)
Quarter: 2010Q2

REPORT INFORMATION
  Report Type: 
  Country: None (occurrence: None)
  Receive Date: 20100630
  Receipt Date: 20100616
  Transmission Date: 20101027
  Serious: Yes (Hospitalization, Disabling)
  Sender: FDA-Public Use
  Company Number: 2010US000037

PATIENT
  Age: 70 Year
  Sex: Female
  Weight: 108.2736 kg

DRUGS (12)
  1. ENTEREG [Suspect]
     Indication: POSTOPERATIVE ILEUS
     Dosage: 12 MG;Q12H;PO
     Route: 048
     Dates: start: 20090724, end: 20090725
  2. MAGNESIUM SULFATE [Concomitant]
  3. REGLAN [Concomitant]
  4. SLIDING SCALE INSULIN [Concomitant]
  5. AMLODIPINE [Concomitant]
  6. ENOXAPARIN [Concomitant]
  7. FLUOXETINE HCL [Concomitant]
  8. ISOSORBIDE MONONITRATE [Concomitant]
  9. TOPROL-XL [Concomitant]
  10. ZOFRAN [Concomitant]
  11. KETOROLAC TROMETHAMINE [Concomitant]
  12. PROCHLORPERAZINE [Concomitant]

REACTIONS (10)
  - COLECTOMY [None]
  - COLON FISTULA REPAIR [None]
  - DILATATION ATRIAL [None]
  - DILATATION VENTRICULAR [None]
  - DYSPNOEA [None]
  - LEFT VENTRICULAR DYSFUNCTION [None]
  - MITRAL VALVE INCOMPETENCE [None]
  - MYOCARDIAL INFARCTION [None]
  - PULMONARY VALVE INCOMPETENCE [None]
  - TRICUSPID VALVE INCOMPETENCE [None]
